FAERS Safety Report 7513936-X (Version None)
Quarter: 2011Q2

REPORT INFORMATION
  Report Type: 
  Country: None (occurrence: None)
  Receive Date: 20110531
  Receipt Date: 20110427
  Transmission Date: 20111010
  Serious: Yes (Hospitalization)
  Sender: FDA-Public Use
  Company Number: PHHY2011BR36555

PATIENT
  Sex: Female

DRUGS (2)
  1. ATENOLOL [Suspect]
     Dosage: 50 MG, UNK
  2. ATENOLOL [Suspect]
     Dosage: 25 MG, UNK
     Route: 048

REACTIONS (3)
  - LABYRINTHITIS [None]
  - BLOOD PRESSURE INCREASED [None]
  - DIZZINESS [None]
